FAERS Safety Report 4313110-4 (Version None)
Quarter: 2004Q1

REPORT INFORMATION
  Report Type: 
  Country: None (occurrence: None)
  Receive Date: 20040304
  Receipt Date: 20040216
  Transmission Date: 20041129
  Serious: Yes (Disabling)
  Sender: FDA-Public Use
  Company Number: JP_040202656

PATIENT
  Age: 75 Year
  Sex: Male
  Weight: 37 kg

DRUGS (7)
  1. VANCOMYCIN [Suspect]
     Indication: PNEUMONIA STAPHYLOCOCCAL
     Dosage: 1 G/DAY
     Dates: start: 20031016, end: 20040114
  2. STRONGER NEO-MINOPHAGEN C [Concomitant]
  3. AMINOPHYLLIN [Concomitant]
  4. FLUMARIN (FLOMOXEF SODIUM) [Concomitant]
  5. FOSMICIN (FOSFOMYCIN CALCIUM) [Concomitant]
  6. TIENAM [Concomitant]
  7. MEROPEN (MEROPENEM) [Concomitant]

REACTIONS (4)
  - ALANINE AMINOTRANSFERASE INCREASED [None]
  - ASPARTATE AMINOTRANSFERASE INCREASED [None]
  - HEPATIC FUNCTION ABNORMAL [None]
  - HEPATITIS C [None]
